FAERS Safety Report 19775169 (Version 4)
Quarter: 2021Q4

REPORT INFORMATION
  Report Type: Spontaneous
  Country: AT (occurrence: AT)
  Receive Date: 20210901
  Receipt Date: 20211025
  Transmission Date: 20220303
  Serious: Yes (Other)
  Sender: FDA-Public Use
  Company Number: AT-SA-SAC20210831000165

PATIENT

DRUGS (1)
  1. DUPIXENT [Suspect]
     Active Substance: DUPILUMAB
     Indication: Chronic rhinosinusitis with nasal polyps

REACTIONS (4)
  - Eosinophilic granulomatosis with polyangiitis [Recovered/Resolved]
  - Asthma [Recovered/Resolved]
  - Eosinophilia [Unknown]
  - Lung disorder [Unknown]
